FAERS Safety Report 6808489-5 (Version None)
Quarter: 2010Q2

REPORT INFORMATION
  Report Type: 
  Country: None (occurrence: None)
  Receive Date: 20100629
  Receipt Date: 20090629
  Transmission Date: 20101027
  Serious: No
  Sender: FDA-Public Use
  Company Number: US-PFIZER INC-2009233369

PATIENT
  Sex: Female

DRUGS (5)
  1. XANAX [Suspect]
  2. CELEBREX [Suspect]
     Indication: ARTHRITIS
  3. SYMBICORT [Suspect]
  4. PRAVACHOL [Suspect]
  5. AMBIEN [Suspect]

REACTIONS (5)
  - EYE PRURITUS [None]
  - EYE SWELLING [None]
  - LIVER DISORDER [None]
  - SKIN DISCOLOURATION [None]
  - SWELLING [None]
